FAERS Safety Report 16360488 (Version 1)
Quarter: 2019Q2

REPORT INFORMATION
  Report Type: Report from Study
  Country: DE (occurrence: DE)
  Receive Date: 20190528
  Receipt Date: 20190528
  Transmission Date: 20190711
  Serious: No
  Sender: FDA-Public Use
  Company Number: DE-ROCHE-2324190

PATIENT
  Age: 59 Year
  Sex: Female
  Weight: 57 kg

DRUGS (8)
  1. PREDNISOLUT [PREDNISOLONE HEMISUCCINATE] [Concomitant]
     Route: 042
     Dates: start: 20180430, end: 20180515
  2. GYNOKADIN [Concomitant]
     Active Substance: ESTRADIOL
     Route: 062
     Dates: start: 201607
  3. RAMIPRIL. [Concomitant]
     Active Substance: RAMIPRIL
     Indication: HYPERTENSION
     Route: 048
     Dates: start: 2016
  4. AMLODIPINE [Concomitant]
     Active Substance: AMLODIPINE BESYLATE
     Indication: HYPERTENSION
     Route: 048
     Dates: start: 201606
  5. RANITIDINE. [Concomitant]
     Active Substance: RANITIDINE
     Route: 048
     Dates: start: 20180429, end: 20180516
  6. BACLOFEN. [Concomitant]
     Active Substance: BACLOFEN
     Route: 065
     Dates: start: 201408
  7. OCRELIZUMAB. [Suspect]
     Active Substance: OCRELIZUMAB
     Indication: MULTIPLE SCLEROSIS
     Route: 042
     Dates: start: 20180416, end: 20190515
  8. AERIUS (DESLORATADINE) [Concomitant]
     Active Substance: DESLORATADINE
     Route: 048
     Dates: start: 20180429, end: 20180516

REACTIONS (3)
  - Respiratory tract infection [Recovered/Resolved]
  - Abdominal pain upper [Recovered/Resolved]
  - Spinal disorder [Recovering/Resolving]

NARRATIVE: CASE EVENT DATE: 20181015
